FAERS Safety Report 6730725-4 (Version None)
Quarter: 2010Q2

REPORT INFORMATION
  Report Type: 
  Country: None (occurrence: None)
  Receive Date: 20100518
  Receipt Date: 20100507
  Transmission Date: 20101027
  Serious: Yes (Other)
  Sender: FDA-Public Use
  Company Number: US-BAYER-201021934NA

PATIENT
  Age: 32 Year
  Sex: Female

DRUGS (2)
  1. YASMIN [Suspect]
     Indication: DRUG USE FOR UNKNOWN INDICATION
     Route: 048
     Dates: start: 20040501, end: 20060101
  2. YASMIN [Suspect]
     Route: 048
     Dates: start: 20060301, end: 20060701

REACTIONS (1)
  - CHOLECYSTECTOMY [None]
